FAERS Safety Report 26082954 (Version 1)
Quarter: 2025Q4

REPORT INFORMATION
  Report Type: Spontaneous
  Country: US (occurrence: None)
  Receive Date: 20251124
  Receipt Date: 20251124
  Transmission Date: 20260117
  Serious: Yes (Hospitalization)
  Sender: FDA-CTU
  Company Number: None

PATIENT
  Sex: Male

DRUGS (11)
  1. LENALIDOMIDE [Suspect]
     Active Substance: LENALIDOMIDE
     Indication: Plasma cell myeloma
     Dosage: TAKE ONE CAPSULE BY MOUTH ONCE DAILY FOR 7 DAYS, FOLLOWED BY 7 DAYS OFF, THEN REPEAT.??
     Route: 048
     Dates: start: 20251003
  2. ACYCLOVIR [Concomitant]
     Active Substance: ACYCLOVIR
  3. Albuterol AER HFA [Concomitant]
  4. ARTIFICIAL DRO TEARS [Concomitant]
  5. ASPIRIN LOW CHW 81MG [Concomitant]
  6. BUMEX TAB 2MG [Concomitant]
  7. COREG TAB 6.25MG [Concomitant]
  8. DEXAMETHASONE [Concomitant]
     Active Substance: DEXAMETHASONE
  9. FINASTERIDE [Concomitant]
     Active Substance: FINASTERIDE
  10. HYDRALAZINE [Concomitant]
     Active Substance: HYDRALAZINE HYDROCHLORIDE
  11. ISOSORB DIN TAB 5MG [Concomitant]

REACTIONS (1)
  - Hospice care [None]
